FAERS Safety Report 18769440 (Version 1)
Quarter: 2021Q1

REPORT INFORMATION
  Report Type: Spontaneous
  Country: CN (occurrence: CN)
  Receive Date: 20210121
  Receipt Date: 20210121
  Transmission Date: 20210419
  Serious: Yes (Hospitalization)
  Sender: FDA-Public Use
  Company Number: NVSC2020CN324478

PATIENT
  Age: 64 Year
  Sex: Female

DRUGS (2)
  1. ENTRESTO [Suspect]
     Active Substance: SACUBITRIL\VALSARTAN
     Dosage: 0.5 DF, BID (0.5  TABLET IN THE MORNING, 0.5 TABLET IN THE EVENING)
     Route: 048
  2. ENTRESTO [Suspect]
     Active Substance: SACUBITRIL\VALSARTAN
     Indication: CARDIAC FAILURE
     Dosage: 1 DF, BID (1 TABLET IN THE MORNING, 1 TABLET IN THE EVENING)
     Route: 048

REACTIONS (7)
  - Hyperhidrosis [Unknown]
  - Drug ineffective [Unknown]
  - Asthenia [Unknown]
  - Wrong technique in product usage process [Unknown]
  - Ejection fraction decreased [Unknown]
  - Hypotension [Unknown]
  - Dizziness [Unknown]

NARRATIVE: CASE EVENT DATE: 20201125
